FAERS Safety Report 17480954 (Version 1)
Quarter: 2020Q1

REPORT INFORMATION
  Report Type: Spontaneous
  Country: US (occurrence: US)
  Receive Date: 20200302
  Receipt Date: 20200302
  Transmission Date: 20200409
  Serious: Yes (Other)
  Sender: FDA-Public Use
  Company Number: US-ACCORD-174057

PATIENT
  Age: 51 Year
  Sex: Female

DRUGS (6)
  1. ETOPOSIDE. [Suspect]
     Active Substance: ETOPOSIDE
     Indication: METASTASES TO LIVER
  2. ETOPOSIDE. [Suspect]
     Active Substance: ETOPOSIDE
     Indication: COLON CANCER STAGE III
  3. CISPLATIN. [Suspect]
     Active Substance: CISPLATIN
     Indication: COLON CANCER STAGE III
  4. CISPLATIN. [Suspect]
     Active Substance: CISPLATIN
     Indication: METASTASES TO CENTRAL NERVOUS SYSTEM
  5. ETOPOSIDE. [Suspect]
     Active Substance: ETOPOSIDE
     Indication: METASTASES TO CENTRAL NERVOUS SYSTEM
  6. CISPLATIN. [Suspect]
     Active Substance: CISPLATIN
     Indication: METASTASES TO LIVER

REACTIONS (6)
  - Off label use [Unknown]
  - Pulmonary embolism [Unknown]
  - Ascites [Unknown]
  - Sepsis [Unknown]
  - Confusional state [Unknown]
  - Lethargy [Unknown]
